FAERS Safety Report 15263825 (Version 1)
Quarter: 2018Q3

REPORT INFORMATION
  Report Type: Spontaneous
  Country: CA (occurrence: CA)
  Receive Date: 20180810
  Receipt Date: 20180810
  Transmission Date: 20181010
  Serious: Yes (Death, Hospitalization)
  Sender: FDA-Public Use
  Company Number: CA-SUN PHARMACEUTICAL INDUSTRIES LTD-2018US-169747

PATIENT
  Age: 28 Year
  Sex: Male

DRUGS (8)
  1. METHAMPHETAMINE [Suspect]
     Active Substance: METHAMPHETAMINE
     Indication: PRODUCT USED FOR UNKNOWN INDICATION
     Dosage: 0.1 G OF CRYSTAL, 3 DAYS PER WEEK
     Route: 042
  2. BUPRENORPHINE/NALOXONE [Suspect]
     Active Substance: BUPRENORPHINE\NALOXONE
     Dosage: TO BE TAPERED BY 2/0.5 MG DAILY
     Route: 065
  3. QUETIAPINE. [Suspect]
     Active Substance: QUETIAPINE
     Indication: DRUG WITHDRAWAL SYNDROME
     Dosage: UNK
     Route: 065
  4. BUPRENORPHINE/NALOXONE [Suspect]
     Active Substance: BUPRENORPHINE\NALOXONE
     Indication: DRUG WITHDRAWAL SYNDROME
     Dosage: 8MG/2MG
     Route: 065
  5. CLONIDINE. [Suspect]
     Active Substance: CLONIDINE
     Indication: DRUG WITHDRAWAL SYNDROME
     Dosage: UNK
     Route: 065
  6. TRAZODONE [Suspect]
     Active Substance: TRAZODONE HYDROCHLORIDE
     Indication: DRUG WITHDRAWAL SYNDROME
     Dosage: UNK
     Route: 065
  7. HEROIN [Suspect]
     Active Substance: DIAMORPHINE
     Indication: PRODUCT USED FOR UNKNOWN INDICATION
     Dosage: 0.3 G, DAILY
     Route: 042
  8. DIMENHYDRINATE. [Suspect]
     Active Substance: DIMENHYDRINATE
     Indication: DRUG WITHDRAWAL SYNDROME
     Dosage: UNK
     Route: 065

REACTIONS (1)
  - Overdose [Fatal]
